FAERS Safety Report 9734723 (Version 1)
Quarter: 2013Q4

REPORT INFORMATION
  Report Type: Spontaneous
  Country: FR (occurrence: FR)
  Receive Date: 20131206
  Receipt Date: 20131206
  Transmission Date: 20140711
  Serious: Yes (Hospitalization)
  Sender: FDA-Public Use
  Company Number: FR-JNJFOC-20131118538

PATIENT
  Age: 63 Year
  Sex: Female

DRUGS (3)
  1. CAELYX [Suspect]
     Indication: OVARIAN CANCER STAGE IV
     Route: 042
     Dates: start: 20131025
  2. METHYL-PREDNISOLON [Concomitant]
     Indication: PRODUCT USED FOR UNKNOWN INDICATION
     Route: 065
     Dates: start: 20131025
  3. ZOPHREN [Concomitant]
     Indication: PRODUCT USED FOR UNKNOWN INDICATION
     Dosage: 8MG/4ML
     Route: 065
     Dates: start: 20131025

REACTIONS (6)
  - Dyspepsia [Recovered/Resolved]
  - Malaise [Recovered/Resolved]
  - Pruritus [Recovered/Resolved]
  - Pallor [Recovered/Resolved]
  - Infusion related reaction [Recovered/Resolved]
  - Peripheral coldness [Unknown]
